FAERS Safety Report 9681277 (Version 1)
Quarter: 2013Q4

REPORT INFORMATION
  Report Type: Spontaneous
  Country: NZ (occurrence: NZ)
  Receive Date: 20131111
  Receipt Date: 20131111
  Transmission Date: 20140711
  Serious: Yes (Other)
  Sender: FDA-Public Use
  Company Number: NZ-PFIZER INC-2013315362

PATIENT
  Sex: Male

DRUGS (1)
  1. AVIGRA [Suspect]
     Dosage: UNK

REACTIONS (1)
  - Pulmonary embolism [Unknown]
